FAERS Safety Report 19127447 (Version 3)
Quarter: 2021Q2

REPORT INFORMATION
  Report Type: Spontaneous
  Country: None (occurrence: US)
  Receive Date: 20210413
  Receipt Date: 20210609
  Transmission Date: 20210717
  Serious: No
  Sender: FDA-Public Use
  Company Number: US-MILLICENT HOLDINGS LTD.-MILL20210049

PATIENT
  Age: 62 Year
  Sex: Female

DRUGS (6)
  1. FEMRING [Suspect]
     Active Substance: ESTRADIOL ACETATE
     Indication: HOT FLUSH
  2. _PROGESTERONE [Concomitant]
     Dosage: UNKNOWN
     Route: 065
  3. THYROID MEDICATION [Concomitant]
     Active Substance: UNSPECIFIED INGREDIENT
     Indication: PRODUCT USED FOR UNKNOWN INDICATION
     Dosage: UNKNOWN
     Route: 065
  4. ANTIDEPRESSANTS [Concomitant]
     Active Substance: UNSPECIFIED INGREDIENT
     Indication: PRODUCT USED FOR UNKNOWN INDICATION
     Dosage: UNKNOWN
     Route: 065
  5. FEMRING [Suspect]
     Active Substance: ESTRADIOL ACETATE
     Indication: HYPERHIDROSIS
     Dosage: (THE LOWEST DOSE) 0.05 MG / DAY
     Route: 067
  6. MEDICATION FOR ACID REFLUX [Concomitant]
     Indication: PRODUCT USED FOR UNKNOWN INDICATION
     Dosage: UNKNOWN
     Route: 065

REACTIONS (3)
  - Drug ineffective [Not Recovered/Not Resolved]
  - Hot flush [Not Recovered/Not Resolved]
  - Hyperhidrosis [Not Recovered/Not Resolved]

NARRATIVE: CASE EVENT DATE: 20210318
